FAERS Safety Report 4989585-4 (Version None)
Quarter: 2006Q2

REPORT INFORMATION
  Report Type: 
  Country: None (occurrence: None)
  Receive Date: 20060502
  Receipt Date: 20060421
  Transmission Date: 20061013
  Serious: Yes (Hospitalization)
  Sender: FDA-Public Use
  Company Number: US-MERCK-0604USA03654

PATIENT
  Age: 53 Year
  Sex: Female
  Weight: 105 kg

DRUGS (10)
  1. VIOXX [Suspect]
     Indication: ARTHRITIS
     Route: 048
     Dates: start: 19990101, end: 20040901
  2. PREMARIN [Concomitant]
     Route: 048
  3. LEXAPRO [Concomitant]
     Route: 048
  4. ACTOS [Concomitant]
     Route: 048
  5. ZETIA [Concomitant]
     Route: 048
  6. ACCUPRIL [Concomitant]
     Route: 048
  7. METOPROLOL [Concomitant]
     Route: 048
  8. HYDROCHLOROTHIAZIDE [Concomitant]
     Route: 048
  9. NITROQUICK [Concomitant]
     Route: 065
  10. ZYRTEC [Concomitant]
     Route: 048

REACTIONS (1)
  - MYOCARDIAL INFARCTION [None]
